FAERS Safety Report 19415473 (Version 1)
Quarter: 2021Q2

REPORT INFORMATION
  Report Type: Report from Study
  Country: BR (occurrence: BR)
  Receive Date: 20210615
  Receipt Date: 20210615
  Transmission Date: 20210717
  Serious: Yes (Other)
  Sender: FDA-Public Use
  Company Number: NVSC2020BR295782

PATIENT
  Age: 88 Year
  Sex: Female

DRUGS (2)
  1. KISQALI [Suspect]
     Active Substance: RIBOCICLIB
     Indication: BREAST CANCER METASTATIC
     Dosage: 200 MG (1 TABLET, DAILY FOR 21 DAYS)
     Route: 048
     Dates: start: 20201027
  2. KISQALI [Suspect]
     Active Substance: RIBOCICLIB
     Dosage: 1 DF (7 DAYS REST)
     Route: 048
     Dates: start: 202009

REACTIONS (4)
  - Renal impairment [Unknown]
  - Glomerular filtration rate abnormal [Recovered/Resolved]
  - Blood creatinine abnormal [Recovered/Resolved]
  - Product prescribing issue [Unknown]

NARRATIVE: CASE EVENT DATE: 202104
